FAERS Safety Report 9954979 (Version 2)
Quarter: 2014Q1

REPORT INFORMATION
  Report Type: Spontaneous
  Country: PR (occurrence: PR)
  Receive Date: 20140304
  Receipt Date: 20140304
  Transmission Date: 20141002
  Serious: No
  Sender: FDA-Public Use
  Company Number: PR-ABBVIE-12P-131-0994619-00

PATIENT
  Age: 56 Year
  Sex: Female
  Weight: 53.57 kg

DRUGS (8)
  1. HUMIRA [Suspect]
     Indication: PRODUCT USED FOR UNKNOWN INDICATION
     Route: 058
     Dates: start: 201208, end: 201210
  2. HUMIRA [Suspect]
     Route: 058
     Dates: start: 201210
  3. CYMBALTA [Concomitant]
     Indication: MAJOR DEPRESSION
     Route: 048
  4. METHOTREXATE [Concomitant]
     Indication: ARTHRITIS
     Route: 048
  5. PREDNISONE [Concomitant]
     Indication: ARTHRITIS
     Route: 048
  6. FOLIC ACID [Concomitant]
     Indication: ARTHRITIS
     Route: 048
  7. PEPCID [Concomitant]
     Indication: GASTRITIS
  8. CENTRUM [Concomitant]
     Indication: VITAMIN SUPPLEMENTATION
     Route: 048

REACTIONS (1)
  - Nasopharyngitis [Recovered/Resolved]
